FAERS Safety Report 10983953 (Version 1)
Quarter: 2015Q2

REPORT INFORMATION
  Report Type: Spontaneous
  Country: US (occurrence: US)
  Receive Date: 20150403
  Receipt Date: 20150403
  Transmission Date: 20150821
  Serious: Yes (Death)
  Sender: FDA-Public Use
  Company Number: US-INCYTE CORPORATION-2015IN001325

PATIENT
  Sex: Female

DRUGS (3)
  1. VANCOMYCIN [Concomitant]
     Active Substance: VANCOMYCIN
  2. JAKAFI [Suspect]
     Active Substance: RUXOLITINIB
     Dosage: 20 MG, BID
     Route: 048
     Dates: start: 20140521
  3. NYSTATIN. [Concomitant]
     Active Substance: NYSTATIN

REACTIONS (1)
  - Mycobacterium avium complex infection [Fatal]
